FAERS Safety Report 24546159 (Version 1)
Quarter: 2024Q4

REPORT INFORMATION
  Report Type: Spontaneous
  Country: US (occurrence: US)
  Receive Date: 20241024
  Receipt Date: 20241024
  Transmission Date: 20250115
  Serious: Yes (Other)
  Sender: UPSHER SMITH LABORATORIES
  Company Number: US-UPSHER-SMITH LABORATORIES, LLC-2024USL00275

PATIENT
  Sex: Female
  Weight: 48.98 kg

DRUGS (14)
  1. JANTOVEN [Suspect]
     Active Substance: WARFARIN SODIUM
     Indication: Atrial fibrillation
     Dosage: 4 MG, 1X/DAY
     Dates: start: 2023, end: 20240313
  2. JANTOVEN [Suspect]
     Active Substance: WARFARIN SODIUM
     Dosage: 4 MG, 1X/DAY
     Dates: start: 20240318
  3. JANTOVEN [Suspect]
     Active Substance: WARFARIN SODIUM
     Indication: Atrial fibrillation
     Dosage: 5 MG
  4. JANTOVEN [Suspect]
     Active Substance: WARFARIN SODIUM
     Dosage: DIFFERENT DOSES
  5. FLECAINIDE [Concomitant]
     Active Substance: FLECAINIDE
     Dosage: 50 MG, 2X/DAY
  6. AMLODIPINE [Concomitant]
     Active Substance: AMLODIPINE BESYLATE
     Dosage: 7.5 MG (5 MG AND 2.5 MG), 1X/DAY
  7. ATORVASTATIN [Concomitant]
     Active Substance: ATORVASTATIN
     Dosage: 40 MG, 1X/DAY
  8. OXYBUTYNIN [Concomitant]
     Active Substance: OXYBUTYNIN
     Dosage: 5 MG, 1X/DAY
  9. VITAMINS NOS [Concomitant]
     Active Substance: VITAMINS
     Dosage: PROCAP AT NIGHT TIME FOR SLEEP
  10. CALCIUM [Concomitant]
     Active Substance: CALCIUM
  11. MAGNESIUM [Concomitant]
     Active Substance: MAGNESIUM
  12. HAIR SKIN NAILS [Concomitant]
  13. BRAIN AND MEMORY [Concomitant]
  14. PROCAP [Concomitant]

REACTIONS (2)
  - International normalised ratio increased [Recovered/Resolved]
  - International normalised ratio fluctuation [Recovered/Resolved]

NARRATIVE: CASE EVENT DATE: 20230101
